FAERS Safety Report 7118156-9 (Version None)
Quarter: 2010Q4

REPORT INFORMATION
  Report Type: 
  Country: None (occurrence: None)
  Receive Date: 20101123
  Receipt Date: 20101111
  Transmission Date: 20110411
  Serious: Yes (Hospitalization, Other)
  Sender: FDA-Public Use
  Company Number: US-BAYER-201031754NA

PATIENT
  Age: 17 Year
  Sex: Female
  Weight: 88 kg

DRUGS (6)
  1. YAZ [Suspect]
     Indication: PRODUCT USED FOR UNKNOWN INDICATION
     Route: 048
  2. YASMIN [Suspect]
     Indication: PRODUCT USED FOR UNKNOWN INDICATION
     Route: 048
     Dates: start: 20080101, end: 20080101
  3. OCELLA [Suspect]
     Indication: PRODUCT USED FOR UNKNOWN INDICATION
     Dates: start: 20080101, end: 20080101
  4. IBUPROFEN [Concomitant]
  5. METOPROLOL TARTRATE [Concomitant]
     Indication: CARDIAC DISORDER
  6. ANTIBIOTIC [Concomitant]

REACTIONS (4)
  - ACNE [None]
  - INJURY [None]
  - PAIN [None]
  - PULMONARY EMBOLISM [None]
